FAERS Safety Report 8578403-3 (Version None)
Quarter: 2012Q2

REPORT INFORMATION
  Report Type: 
  Country: None (occurrence: None)
  Receive Date: 20120423
  Receipt Date: 20100331
  Transmission Date: 20120825
  Serious: Yes (Other)
  Sender: FDA-Public Use
  Company Number: PHHY2010US12637

PATIENT
  Sex: Male
  Weight: 91.2 kg

DRUGS (1)
  1. EXJADE [Suspect]
     Dosage: 1500 MG/DAY, ORAL
     Route: 048
     Dates: start: 20100120

REACTIONS (2)
  - RASH [None]
  - OEDEMA [None]
